FAERS Safety Report 25192450 (Version 1)
Quarter: 2025Q2

REPORT INFORMATION
  Report Type: Other
  Country: ES (occurrence: ES)
  Receive Date: 20250414
  Receipt Date: 20250414
  Transmission Date: 20250716
  Serious: Yes (Other)
  Sender: LYNE LABORATORIES
  Company Number: ES-Lyne Laboratories Inc.-2174831

PATIENT
  Age: 27 Year
  Sex: Male

DRUGS (2)
  1. DEXAMETHASONE [Suspect]
     Active Substance: DEXAMETHASONE
     Indication: Product used for unknown indication
  2. PREDNISONE [Suspect]
     Active Substance: PREDNISONE

REACTIONS (4)
  - Hallucination [Recovering/Resolving]
  - Substance-induced psychotic disorder [Recovering/Resolving]
  - Thought blocking [Recovering/Resolving]
  - Delusion [Recovering/Resolving]
